FAERS Safety Report 6704014-8 (Version None)
Quarter: 2010Q2

REPORT INFORMATION
  Report Type: 
  Country: None (occurrence: None)
  Receive Date: 20100430
  Receipt Date: 20100422
  Transmission Date: 20101027
  Serious: Yes (Other)
  Sender: FDA-Public Use
  Company Number: JP-ROCHE-699442

PATIENT
  Sex: Male

DRUGS (11)
  1. CAPECITABINE [Suspect]
     Indication: COLON CANCER
     Route: 048
     Dates: start: 20081010, end: 20081023
  2. CAPECITABINE [Suspect]
     Route: 048
     Dates: start: 20081031, end: 20081113
  3. CAPECITABINE [Suspect]
     Route: 048
     Dates: start: 20090116, end: 20090129
  4. CAPECITABINE [Suspect]
     Route: 048
     Dates: start: 20090206, end: 20090219
  5. CAPECITABINE [Suspect]
     Route: 048
     Dates: start: 20090227, end: 20090312
  6. CAPECITABINE [Suspect]
     Route: 048
     Dates: start: 20090319, end: 20090401
  7. CAPECITABINE [Suspect]
     Route: 048
     Dates: start: 20090409, end: 20090422
  8. CAPECITABINE [Suspect]
     Route: 048
     Dates: start: 20090612, end: 20090625
  9. CAPECITABINE [Suspect]
     Dosage: NOTE: DOSAGE IS UNCERTAIN
     Route: 048
     Dates: start: 20090101
  10. LENDORMIN [Concomitant]
     Dosage: DRUG NAME: LENDORMIN D
     Route: 048
  11. PYDOXAL [Concomitant]
     Dosage: DRUG NAME: PYDOXAL TAB
     Route: 048
     Dates: start: 20081010

REACTIONS (3)
  - FIBULA FRACTURE [None]
  - PALMAR-PLANTAR ERYTHRODYSAESTHESIA SYNDROME [None]
  - TIBIA FRACTURE [None]
